FAERS Safety Report 8216960-7 (Version None)
Quarter: 2012Q1

REPORT INFORMATION
  Report Type: 
  Country: None (occurrence: None)
  Receive Date: 20120319
  Receipt Date: 20120307
  Transmission Date: 20120608
  Serious: Yes (Other)
  Sender: FDA-Public Use
  Company Number: US-BRISTOL-MYERS SQUIBB COMPANY-16443178

PATIENT
  Age: 88 Year
  Sex: Female
  Weight: 66 kg

DRUGS (1)
  1. WARFARIN SODIUM [Suspect]
     Indication: COAGULOPATHY

REACTIONS (1)
  - TRANSIENT ISCHAEMIC ATTACK [None]
